FAERS Safety Report 9774562 (Version 2)
Quarter: 2014Q1

REPORT INFORMATION
  Report Type: Spontaneous
  Country: US (occurrence: US)
  Receive Date: 20131220
  Receipt Date: 20140129
  Transmission Date: 20141002
  Serious: Yes (Other)
  Sender: FDA-Public Use
  Company Number: US-TEVA-451218USA

PATIENT
  Sex: Female

DRUGS (1)
  1. COPAXONE [Suspect]

REACTIONS (5)
  - Multiple sclerosis relapse [Unknown]
  - Cerebrovascular accident [Unknown]
  - Respiratory disorder [Unknown]
  - Cough [Unknown]
  - Adverse event [Unknown]
